FAERS Safety Report 7881337 (Version 5)
Quarter: 2014Q3

REPORT INFORMATION
  Report Type: Spontaneous
  Country: US (occurrence: None)
  Receive Date: 20110311
  Receipt Date: 20140717
  Transmission Date: 20150326
  Serious: Yes (Death, Life-Threatening, Hospitalization, Other)
  Sender: FDA-Public Use
  Company Number: 113583

PATIENT
  Age: 36 Year
  Sex: Female
  Weight: 82 kg

DRUGS (1)
  1. ETOPOSIDE. [Suspect]
     Active Substance: ETOPOSIDE
     Indication: NON-SMALL CELL LUNG CANCER STAGE III
     Dosage: 110MG IV
     Route: 042
     Dates: start: 20100510, end: 20100611

REACTIONS (8)
  - Dysphagia [None]
  - Orthopnoea [None]
  - Pneumonia bacterial [None]
  - Pneumonia [None]
  - Dyspnoea paroxysmal nocturnal [None]
  - Oesophagitis [None]
  - Haemoptysis [None]
  - Bronchial fistula [None]

NARRATIVE: CASE EVENT DATE: 20100806
